FAERS Safety Report 20594683 (Version 1)
Quarter: 2022Q1

REPORT INFORMATION
  Report Type: Spontaneous
  Country: GR (occurrence: None)
  Receive Date: 20220315
  Receipt Date: 20220315
  Transmission Date: 20220423
  Serious: Yes (Other)
  Sender: FDA-Public Use
  Company Number: GR-ACS-002201

PATIENT
  Age: 77 Year
  Sex: Female

DRUGS (1)
  1. CEFUROXIME [Suspect]
     Active Substance: CEFUROXIME
     Dosage: INTRACAMERAL CEFUROXIME OVER 4ML (CONCENTRATION: 1MG/0.1ML)
     Route: 031

REACTIONS (4)
  - Retinal infarction [Recovered/Resolved with Sequelae]
  - Retinal haemorrhage [Recovered/Resolved with Sequelae]
  - Off label use [Unknown]
  - Incorrect dose administered [Unknown]
